FAERS Safety Report 20768833 (Version 1)
Quarter: 2022Q2

REPORT INFORMATION
  Report Type: Spontaneous
  Country: CN (occurrence: CN)
  Receive Date: 20220429
  Receipt Date: 20220429
  Transmission Date: 20220720
  Serious: Yes (Hospitalization)
  Sender: FDA-Public Use
  Company Number: CN-Merck Healthcare KGaA-9314629

PATIENT
  Age: 78 Year
  Sex: Male
  Weight: 53 kg

DRUGS (2)
  1. ERBITUX [Suspect]
     Active Substance: CETUXIMAB
     Indication: Hypopharyngeal cancer
     Dosage: 400 MG, UNK
     Route: 041
     Dates: start: 20220211, end: 20220211
  2. GEMCITABINE HYDROCHLORIDE [Suspect]
     Active Substance: GEMCITABINE HYDROCHLORIDE
     Indication: Hypopharyngeal cancer
     Dosage: 1.2 G, DAILY
     Route: 041
     Dates: start: 20220211, end: 20220211

REACTIONS (4)
  - White blood cell count decreased [Unknown]
  - Hypocalcaemia [Unknown]
  - Asthenia [Unknown]
  - Decreased appetite [Unknown]

NARRATIVE: CASE EVENT DATE: 20220212
